FAERS Safety Report 4772479-7 (Version None)
Quarter: 2005Q3

REPORT INFORMATION
  Report Type: 
  Country: None (occurrence: None)
  Receive Date: 20050916
  Receipt Date: 20050916
  Transmission Date: 20060218
  Serious: Yes (Other)
  Sender: FDA-Public Use
  Company Number: None

PATIENT
  Sex: Female
  Weight: 65.9 kg

DRUGS (2)
  1. ZOSYN [Suspect]
     Indication: INTRASPINAL ABSCESS
     Dosage: 4.5 GM IV Q8 HR
     Route: 042
     Dates: start: 20050830, end: 20050914
  2. ZOSYN [Suspect]
     Indication: ROAD TRAFFIC ACCIDENT
     Dosage: 4.5 GM IV Q8 HR
     Route: 042
     Dates: start: 20050830, end: 20050914

REACTIONS (3)
  - PYREXIA [None]
  - RASH GENERALISED [None]
  - RASH PRURITIC [None]
